FAERS Safety Report 14253773 (Version 7)
Quarter: 2020Q1

REPORT INFORMATION
  Report Type: Spontaneous
  Country: SK (occurrence: SK)
  Receive Date: 20171206
  Receipt Date: 20200303
  Transmission Date: 20200409
  Serious: Yes (Hospitalization, Other)
  Sender: FDA-Public Use
  Company Number: SK-ARIAD-2017SK008235

PATIENT
  Age: 55 Year
  Sex: Female
  Weight: 65 kg

DRUGS (8)
  1. ICLUSIG [Suspect]
     Active Substance: PONATINIB
     Indication: CHRONIC MYELOID LEUKAEMIA RECURRENT
     Dosage: 45 MILLIGRAM, QD
     Route: 048
     Dates: start: 20160802, end: 201608
  2. ICLUSIG [Suspect]
     Active Substance: PONATINIB
     Dosage: 30 MILLIGRAM, QD
     Route: 048
     Dates: start: 201611
  3. AGEN [Concomitant]
     Active Substance: AMLODIPINE BESYLATE
     Indication: PRODUCT USED FOR UNKNOWN INDICATION
     Dosage: 10 MILLIGRAM, QD
     Route: 065
  4. NEBILET [Concomitant]
     Active Substance: NEBIVOLOL
     Indication: PRODUCT USED FOR UNKNOWN INDICATION
     Dosage: 5 MILLIGRAM, QD
     Route: 065
  5. ASA [Concomitant]
     Active Substance: ASPIRIN
     Indication: PRODUCT USED FOR UNKNOWN INDICATION
     Dosage: 50 MILLIGRAM, QD
     Route: 065
  6. ICLUSIG [Suspect]
     Active Substance: PONATINIB
     Dosage: 45 MILLIGRAM, QOD
     Route: 048
     Dates: start: 201608, end: 201611
  7. ICLUSIG [Suspect]
     Active Substance: PONATINIB
     Dosage: 15 MILLIGRAM, QD
     Route: 048
     Dates: start: 20190115
  8. ANOPYRIN [Concomitant]
     Active Substance: ASPIRIN
     Indication: PRODUCT USED FOR UNKNOWN INDICATION
     Dosage: 50 MILLIGRAM, QD
     Route: 065

REACTIONS (10)
  - C-reactive protein increased [Not Recovered/Not Resolved]
  - Coronary artery disease [Recovering/Resolving]
  - Hepatomegaly [Recovered/Resolved with Sequelae]
  - Hyperlipidaemia [Not Recovered/Not Resolved]
  - Arterial occlusive disease [Unknown]
  - Hepatic enzyme increased [Recovered/Resolved with Sequelae]
  - Influenza like illness [Recovered/Resolved]
  - Treatment noncompliance [Unknown]
  - Hypertension [Recovered/Resolved]
  - Cardiac dysfunction [Unknown]

NARRATIVE: CASE EVENT DATE: 20160808
